FAERS Safety Report 8307543-9 (Version None)
Quarter: 2012Q2

REPORT INFORMATION
  Report Type: 
  Country: None (occurrence: None)
  Receive Date: 20120424
  Receipt Date: 20120413
  Transmission Date: 20120825
  Serious: Yes (Other)
  Sender: FDA-Public Use
  Company Number: US-SANOFI-AVENTIS-2011SA002021

PATIENT
  Age: 73 Year
  Sex: Female

DRUGS (4)
  1. DABIGATRAN ETEXILATE [Concomitant]
  2. MULTAQ [Suspect]
     Indication: ATRIAL FIBRILLATION
     Route: 048
     Dates: start: 20101201
  3. ASPIRIN [Concomitant]
  4. TOPROL-XL [Suspect]
     Route: 065

REACTIONS (4)
  - SYNCOPE [None]
  - ATRIAL FIBRILLATION [None]
  - ALOPECIA [None]
  - NASOPHARYNGITIS [None]
